FAERS Safety Report 6020245-7 (Version None)
Quarter: 2008Q4

REPORT INFORMATION
  Report Type: 
  Country: None (occurrence: None)
  Receive Date: 20081226
  Receipt Date: 20081217
  Transmission Date: 20090506
  Serious: Yes (Other)
  Sender: FDA-Public Use
  Company Number: PHEH2008US10605

PATIENT
  Sex: Female
  Weight: 65.76 kg

DRUGS (2)
  1. RECLAST [Suspect]
     Indication: OSTEOPOROSIS
     Dosage: 5 MG, UNK
     Dates: start: 20081113
  2. COUMADIN [Interacting]
     Indication: ATRIAL FIBRILLATION
     Dosage: 5MG TWO DAYS WEEK, 4MG FIVE DAYS WEEK
     Route: 048
     Dates: end: 20081117

REACTIONS (1)
  - INTERNATIONAL NORMALISED RATIO INCREASED [None]
